FAERS Safety Report 4481445-0 (Version None)
Quarter: 2004Q3

REPORT INFORMATION
  Report Type: 
  Country: None (occurrence: None)
  Receive Date: 20040923
  Receipt Date: 20040604
  Transmission Date: 20050211
  Serious: No
  Sender: FDA-Public Use
  Company Number: USA040568682

PATIENT
  Age: 90 Year
  Sex: Female

DRUGS (5)
  1. FORTEO [Suspect]
     Dates: start: 20040101
  2. PLAVIX [Concomitant]
  3. ISOSORBIDE [Concomitant]
  4. COZAAR [Concomitant]
  5. CLONIDINE [Concomitant]

REACTIONS (2)
  - BLOOD PRESSURE INCREASED [None]
  - THERAPEUTIC RESPONSE DECREASED [None]
